FAERS Safety Report 5142878-2 (Version None)
Quarter: 2006Q4

REPORT INFORMATION
  Report Type: 
  Country: None (occurrence: None)
  Receive Date: 20061030
  Receipt Date: 20061018
  Transmission Date: 20070319
  Serious: Yes (Hospitalization)
  Sender: FDA-Public Use
  Company Number: S06-FRA-03986-01

PATIENT
  Age: 50 Year
  Sex: Male

DRUGS (1)
  1. SEROPLEX (ESCITALOPRAM) [Suspect]
     Indication: DEPRESSION
     Dosage: 10 MG QD PO
     Route: 048
     Dates: start: 20060901

REACTIONS (2)
  - CHEST PAIN [None]
  - CORONARY ARTERY THROMBOSIS [None]
